FAERS Safety Report 16297506 (Version 4)
Quarter: 2019Q4

REPORT INFORMATION
  Report Type: Spontaneous
  Country: US (occurrence: US)
  Receive Date: 20190510
  Receipt Date: 20191017
  Transmission Date: 20200122
  Serious: No
  Sender: FDA-Public Use
  Company Number: US-PFIZER INC-2019199143

PATIENT
  Age: 71 Year
  Sex: Female

DRUGS (1)
  1. XELJANZ XR [Suspect]
     Active Substance: TOFACITINIB CITRATE
     Indication: RHEUMATOID ARTHRITIS
     Dosage: 11 MG, UNK

REACTIONS (7)
  - Discomfort [Unknown]
  - Myalgia [Unknown]
  - Toothache [Unknown]
  - Tooth disorder [Unknown]
  - Dyspepsia [Unknown]
  - Pain [Unknown]
  - Arthralgia [Unknown]
